FAERS Safety Report 7235656-1 (Version None)
Quarter: 2011Q1

REPORT INFORMATION
  Report Type: 
  Country: None (occurrence: None)
  Receive Date: 20110120
  Receipt Date: 20101013
  Transmission Date: 20110831
  Serious: No
  Sender: FDA-Public Use
  Company Number: US-BAYER-201022684BCC

PATIENT
  Sex: Male
  Weight: 81.818 kg

DRUGS (10)
  1. ALEVE [Suspect]
     Indication: ARTHRITIS
  2. FUROSEMIDE [Concomitant]
  3. ATENOLOL [Concomitant]
  4. ASPIRIN [Concomitant]
  5. TYLENOL PM [Concomitant]
  6. PLAVIX [Concomitant]
  7. OMEPRAZOLE [Concomitant]
  8. PRAVASTATIN [Concomitant]
  9. RAMIPRIL [Concomitant]
  10. KLOR-CON [Concomitant]

REACTIONS (4)
  - PRESYNCOPE [None]
  - DIZZINESS [None]
  - CHEST DISCOMFORT [None]
  - CHEST PAIN [None]
